FAERS Safety Report 8054120-3 (Version None)
Quarter: 2012Q1

REPORT INFORMATION
  Report Type: 
  Country: None (occurrence: None)
  Receive Date: 20120118
  Receipt Date: 20120110
  Transmission Date: 20120608
  Serious: Yes (Other)
  Sender: FDA-Public Use
  Company Number: AU-JNJFOC-20111111774

PATIENT
  Sex: Female
  Weight: 84 kg

DRUGS (5)
  1. REMICADE [Suspect]
     Indication: RHEUMATOID ARTHRITIS
     Dosage: INDUCTIO DOSE
     Route: 042
     Dates: start: 20111129
  2. ACETAMINOPHEN [Concomitant]
     Indication: PREMEDICATION
     Dosage: 2
     Route: 065
  3. HYDROCORTISONE [Concomitant]
     Indication: PREMEDICATION
     Route: 065
  4. REMICADE [Suspect]
     Route: 042
     Dates: start: 20060101
  5. PREDNISONE [Concomitant]
     Route: 065

REACTIONS (6)
  - INFUSION RELATED REACTION [None]
  - DIZZINESS [None]
  - FEELING COLD [None]
  - DYSPNOEA [None]
  - COUGH [None]
  - ERYTHEMA [None]
